FAERS Safety Report 5125088-4 (Version None)
Quarter: 2006Q4

REPORT INFORMATION
  Report Type: 
  Country: None (occurrence: None)
  Receive Date: 20061011
  Receipt Date: 20060928
  Transmission Date: 20070319
  Serious: Yes (Other)
  Sender: FDA-Public Use
  Company Number: PHEH2006US12307

PATIENT
  Sex: Female

DRUGS (2)
  1. ZOMETA [Suspect]
     Indication: RESORPTION BONE INCREASED
  2. FOSAMAX [Suspect]

REACTIONS (5)
  - DECREASED INTEREST [None]
  - EMOTIONAL DISTRESS [None]
  - INJURY [None]
  - OSTEONECROSIS [None]
  - PAIN [None]
